FAERS Safety Report 9747581 (Version 1)
Quarter: 2013Q4

REPORT INFORMATION
  Report Type: Spontaneous
  Country: US (occurrence: US)
  Receive Date: 20131212
  Receipt Date: 20131212
  Transmission Date: 20140711
  Serious: Yes (Other)
  Sender: FDA-Public Use
  Company Number: US-JNJFOC-20131201849

PATIENT
  Age: 20 Year
  Sex: Female
  Weight: 45.81 kg

DRUGS (3)
  1. STELARA [Suspect]
     Indication: PSORIASIS
     Route: 058
     Dates: start: 2011
  2. LEXAPRO [Concomitant]
     Indication: ANXIETY
     Route: 048
     Dates: start: 2013
  3. VYVANSE [Concomitant]
     Indication: ATTENTION DEFICIT/HYPERACTIVITY DISORDER
     Route: 065
     Dates: start: 2006

REACTIONS (2)
  - Ureaplasma infection [Not Recovered/Not Resolved]
  - Papilloma viral infection [Not Recovered/Not Resolved]
